FAERS Safety Report 5209526-4 (Version None)
Quarter: 2006Q4

REPORT INFORMATION
  Report Type: 
  Country: None (occurrence: None)
  Receive Date: 20061101
  Receipt Date: 20060829
  Transmission Date: 20070319
  Serious: No
  Sender: FDA-Public Use
  Company Number: 2006PV020381

PATIENT
  Age: 60 Year
  Sex: Female

DRUGS (1)
  1. SYMLIN [Suspect]
     Indication: DRUG USE FOR UNKNOWN INDICATION
     Dosage: 90 MCG; SC
     Route: 058
     Dates: start: 20060301

REACTIONS (1)
  - INJECTION SITE REACTION [None]
